FAERS Safety Report 9433912 (Version 1)
Quarter: 2013Q3

REPORT INFORMATION
  Report Type: Spontaneous
  Country: HR (occurrence: HR)
  Receive Date: 20130801
  Receipt Date: 20130801
  Transmission Date: 20140515
  Serious: Yes (Other)
  Sender: FDA-Public Use
  Company Number: PHHY2013HR079944

PATIENT
  Age: 65 Year
  Sex: Female

DRUGS (4)
  1. BYOL [Suspect]
     Indication: ESSENTIAL HYPERTENSION
     Dosage: 2.5 MG, BID
     Route: 048
     Dates: start: 201112
  2. LOSARTIC PLUS [Suspect]
     Indication: ESSENTIAL HYPERTENSION
     Dosage: 1 DF, QD
     Dates: start: 201112
  3. LOSARTIC [Suspect]
     Indication: ESSENTIAL HYPERTENSION
     Dosage: 50 MG, QHS
     Route: 048
     Dates: start: 201112
  4. ATORIS [Suspect]
     Indication: LIPID METABOLISM DISORDER
     Dosage: 20 MG, QD
     Route: 048
     Dates: start: 201112

REACTIONS (5)
  - Eye irritation [Not Recovered/Not Resolved]
  - Eye pruritus [Not Recovered/Not Resolved]
  - Dark circles under eyes [Not Recovered/Not Resolved]
  - Eyelid oedema [Not Recovered/Not Resolved]
  - Drug prescribing error [Not Recovered/Not Resolved]
